FAERS Safety Report 14348697 (Version 1)
Quarter: 2018Q1

REPORT INFORMATION
  Report Type: Report from Study
  Country: MX (occurrence: MX)
  Receive Date: 20180104
  Receipt Date: 20180104
  Transmission Date: 20180509
  Serious: Yes (Other)
  Sender: FDA-Public Use
  Company Number: PHHY2017MX197489

PATIENT
  Sex: Female

DRUGS (1)
  1. STALEVO [Suspect]
     Active Substance: CARBIDOPA\ENTACAPONE\LEVODOPA
     Indication: PRODUCT USED FOR UNKNOWN INDICATION
     Dosage: (37.5 MG OF CARBIDOPA, 200 MG OF ENTACAPONE, 150 MG OF LEVODOPA)
     Route: 065

REACTIONS (2)
  - Memory impairment [Unknown]
  - Parkinson^s disease [Unknown]
